FAERS Safety Report 4719027-5 (Version None)
Quarter: 2005Q3

REPORT INFORMATION
  Report Type: 
  Country: None (occurrence: None)
  Receive Date: 20050720
  Receipt Date: 20050708
  Transmission Date: 20060218
  Serious: Yes (Hospitalization)
  Sender: FDA-Public Use
  Company Number: 230005M05PRT

PATIENT
  Age: 18 Year
  Sex: Female
  Weight: 48 kg

DRUGS (6)
  1. REBIF [Suspect]
     Indication: MULTIPLE SCLEROSIS
     Dosage: 22, 3 IN 1 WEEKS, SUBCUTANEOUS
     Route: 058
     Dates: start: 20050331, end: 20050514
  2. GABAPENTIN [Concomitant]
  3. ORAL CONTRACEPTIVE NOS [Concomitant]
  4. TRAZODONE HCL [Concomitant]
  5. ESCITALOPRAM OXALATE [Concomitant]
  6. ALPRAZOLAM [Concomitant]

REACTIONS (1)
  - HEPATITIS TOXIC [None]
